FAERS Safety Report 17883076 (Version 3)
Quarter: 2020Q3

REPORT INFORMATION
  Report Type: Report from Study
  Country: None (occurrence: FR)
  Receive Date: 20200611
  Receipt Date: 20200728
  Transmission Date: 20201103
  Serious: Yes (Hospitalization)
  Sender: FDA-Public Use
  Company Number: FR-ABBVIE-20K-056-3440212-00

PATIENT
  Age: 65 Year
  Sex: Female
  Weight: 93 kg

DRUGS (2)
  1. DUODOPA [Suspect]
     Active Substance: CARBIDOPA\LEVODOPA
     Indication: PARKINSON^S DISEASE
     Route: 050
     Dates: start: 201905, end: 20200604
  2. DUODOPA [Suspect]
     Active Substance: CARBIDOPA\LEVODOPA
     Dosage: MD 10ML,CONTINUOUS DOSE 3.7ML/H FROM 7AM TO 10PM,?EXTRA DOSE5ML 3 TIMES PER DAY
     Route: 050
     Dates: start: 20200607

REACTIONS (4)
  - Depressed mood [Unknown]
  - Dyskinesia [Unknown]
  - Pain in extremity [Unknown]
  - Suicide attempt [Recovered/Resolved]

NARRATIVE: CASE EVENT DATE: 20200604
